FAERS Safety Report 5445156-7 (Version None)
Quarter: 2007Q3

REPORT INFORMATION
  Report Type: 
  Country: None (occurrence: None)
  Receive Date: 20070730
  Receipt Date: 20070305
  Transmission Date: 20080115
  Serious: Yes (Other)
  Sender: FDA-Public Use
  Company Number: 237864

PATIENT
  Age: 74 Year
  Sex: Male

DRUGS (1)
  1. RITUXAN [Suspect]
     Indication: DRUG USE FOR UNKNOWN INDICATION
     Dosage: 862 MG, INTRAVENOUS
     Route: 042

REACTIONS (2)
  - CHEST DISCOMFORT [None]
  - DYSPNOEA [None]
